FAERS Safety Report 18475368 (Version 7)
Quarter: 2021Q1

REPORT INFORMATION
  Report Type: Report from Study
  Country: CA (occurrence: CA)
  Receive Date: 20201106
  Receipt Date: 20210318
  Transmission Date: 20210419
  Serious: Yes (Hospitalization, Other)
  Sender: FDA-Public Use
  Company Number: CA-SHIRE-CA202017871

PATIENT

DRUGS (49)
  1. TEDUGLUTIDE [Suspect]
     Active Substance: TEDUGLUTIDE
     Dosage: 4.85 MILLIGRAM, 1X/DAY:QD
     Route: 065
     Dates: start: 20200310
  2. PANTOPRAZOLE [Concomitant]
     Active Substance: PANTOPRAZOLE
     Indication: PRODUCT USED FOR UNKNOWN INDICATION
     Dosage: 40 MILLIGRAM, BID
  3. ATIVAN [Concomitant]
     Active Substance: LORAZEPAM
     Indication: PRODUCT USED FOR UNKNOWN INDICATION
     Dosage: 0.5 MILLIGRAM, AS NEEDED
  4. HUMIRA [Concomitant]
     Active Substance: ADALIMUMAB
     Indication: CROHN^S DISEASE
  5. TEDUGLUTIDE [Suspect]
     Active Substance: TEDUGLUTIDE
     Dosage: 4.85 MILLIGRAM, 1X/DAY:QD
     Route: 065
     Dates: start: 20200310
  6. TEDUGLUTIDE [Suspect]
     Active Substance: TEDUGLUTIDE
     Dosage: 4.85 MILLIGRAM, 1X/DAY:QD
     Route: 065
     Dates: start: 20200310
  7. IV FLUIDS [Concomitant]
     Active Substance: UNSPECIFIED INGREDIENT
     Indication: PRODUCT USED FOR UNKNOWN INDICATION
     Dosage: 3000 MILLILITER
     Route: 065
  8. NOVORAPID [Concomitant]
     Active Substance: INSULIN ASPART
     Indication: PRODUCT USED FOR UNKNOWN INDICATION
     Dosage: UNK, QID
     Route: 065
  9. METFORMIN [Concomitant]
     Active Substance: METFORMIN HYDROCHLORIDE
     Indication: PRODUCT USED FOR UNKNOWN INDICATION
     Dosage: 500 MILLIGRAM, BID, 2 TABS
  10. LOPERAMIDE [Concomitant]
     Active Substance: LOPERAMIDE
     Indication: PRODUCT USED FOR UNKNOWN INDICATION
     Dosage: 4 MILLIGRAM, 2 TABS TID WITH MEALS
  11. LOPERAMIDE [Concomitant]
     Active Substance: LOPERAMIDE
     Dosage: 2 MILLIGRAM, TID
  12. VITAMIN D [Concomitant]
     Active Substance: VITAMIN D NOS
     Indication: PRODUCT USED FOR UNKNOWN INDICATION
     Dosage: 50000 INTERNATIONAL UNIT, QD
  13. METAMUCIL [Concomitant]
     Active Substance: PLANTAGO SEED
     Indication: PRODUCT USED FOR UNKNOWN INDICATION
     Dosage: 1/2 TEASPOON, QD
     Dates: end: 20200531
  14. TEDUGLUTIDE [Suspect]
     Active Substance: TEDUGLUTIDE
     Indication: SHORT-BOWEL SYNDROME
     Dosage: 4.65 MILLIGRAM, 1X/DAY:QD
     Route: 065
     Dates: start: 20200310
  15. TEDUGLUTIDE [Suspect]
     Active Substance: TEDUGLUTIDE
     Indication: SHORT-BOWEL SYNDROME
     Dosage: 4.65 MILLIGRAM, 1X/DAY:QD
     Route: 065
     Dates: start: 20200310
  16. TEDUGLUTIDE [Suspect]
     Active Substance: TEDUGLUTIDE
     Dosage: 4.85 MILLIGRAM, 1X/DAY:QD
     Route: 065
     Dates: start: 20200310
  17. TEDUGLUTIDE [Suspect]
     Active Substance: TEDUGLUTIDE
     Dosage: 4.85 MILLIGRAM, 1X/DAY:QD
     Route: 065
     Dates: start: 20200310
  18. OCTREOTIDE. [Concomitant]
     Active Substance: OCTREOTIDE
     Indication: PRODUCT USED FOR UNKNOWN INDICATION
     Dosage: 120 MILLIGRAM, TID
     Route: 058
  19. ECTOSONE [Concomitant]
     Indication: PRODUCT USED FOR UNKNOWN INDICATION
     Dosage: UNK
  20. MAGNESIUM [Concomitant]
     Active Substance: MAGNESIUM
     Indication: PRODUCT USED FOR UNKNOWN INDICATION
     Dosage: 3 GRAM, 7/7 DAYS OVER 10 HOURS
  21. TEDUGLUTIDE [Suspect]
     Active Substance: TEDUGLUTIDE
     Dosage: 4.65 MILLIGRAM, 1X/DAY:QD
     Route: 065
     Dates: start: 20200310
  22. VITAMIN A [Concomitant]
     Active Substance: VITAMIN A
     Indication: PRODUCT USED FOR UNKNOWN INDICATION
     Dosage: 20000 INTERNATIONAL UNIT, QD
  23. TEDUGLUTIDE [Suspect]
     Active Substance: TEDUGLUTIDE
     Indication: SHORT-BOWEL SYNDROME
     Dosage: 4.65 MILLIGRAM, 1X/DAY:QD
     Route: 065
     Dates: start: 20200310
  24. TEDUGLUTIDE [Suspect]
     Active Substance: TEDUGLUTIDE
     Dosage: 4.65 MILLIGRAM, 1X/DAY:QD
     Route: 065
     Dates: start: 20200310
  25. TEDUGLUTIDE [Suspect]
     Active Substance: TEDUGLUTIDE
     Dosage: 4.85 MILLIGRAM, 1X/DAY:QD
     Route: 065
     Dates: start: 20200310
  26. ASA [Concomitant]
     Active Substance: ASPIRIN
     Indication: PRODUCT USED FOR UNKNOWN INDICATION
     Dosage: 80 MILLIGRAM, QD
     Route: 065
  27. SYNTHROID [Concomitant]
     Active Substance: LEVOTHYROXINE SODIUM
     Indication: PRODUCT USED FOR UNKNOWN INDICATION
     Dosage: 37.5 OG
  28. ATORVASTATIN [Concomitant]
     Active Substance: ATORVASTATIN
     Indication: PRODUCT USED FOR UNKNOWN INDICATION
     Dosage: 20 MILLIGRAM
     Dates: start: 20200324
  29. CODEINE [Concomitant]
     Active Substance: CODEINE
     Dosage: UNKNOWN, PRN
     Dates: end: 20200629
  30. VITAMIN D [Concomitant]
     Active Substance: VITAMIN D NOS
     Dosage: 20000 UNK
  31. MULTIVITAMINS [Concomitant]
     Active Substance: VITAMINS
     Indication: PRODUCT USED FOR UNKNOWN INDICATION
     Dosage: UNK
  32. FLUCONAZOLE. [Concomitant]
     Active Substance: FLUCONAZOLE
     Indication: FUNGAL INFECTION
     Dosage: 50 MILLIGRAM, 3 TABS TID
  33. REMICADE [Concomitant]
     Active Substance: INFLIXIMAB
     Indication: CROHN^S DISEASE
  34. TRESIBA [Concomitant]
     Active Substance: INSULIN DEGLUDEC
     Indication: PRODUCT USED FOR UNKNOWN INDICATION
  35. IRBESARTAN. [Concomitant]
     Active Substance: IRBESARTAN
     Indication: PRODUCT USED FOR UNKNOWN INDICATION
  36. TEDUGLUTIDE [Suspect]
     Active Substance: TEDUGLUTIDE
     Indication: SHORT-BOWEL SYNDROME
     Dosage: 4.65 MILLIGRAM, 1X/DAY:QD
     Route: 065
     Dates: start: 20200310
  37. TEDUGLUTIDE [Suspect]
     Active Substance: TEDUGLUTIDE
     Dosage: 4.65 MILLIGRAM, 1X/DAY:QD
     Route: 065
     Dates: start: 20200310
  38. TEDUGLUTIDE [Suspect]
     Active Substance: TEDUGLUTIDE
     Dosage: 4.85 MILLIGRAM, 1X/DAY:QD
     Route: 065
     Dates: start: 20200310
  39. METOPROLOL. [Concomitant]
     Active Substance: METOPROLOL
     Indication: PRODUCT USED FOR UNKNOWN INDICATION
     Dosage: 12.5 MILLIGRAM, QD
  40. CODEINE [Concomitant]
     Active Substance: CODEINE
     Indication: ARTHRITIS
     Dosage: 30 MILLIGRAM, TO 2 TABLETS TID
  41. AMITRIPTYLINE [Concomitant]
     Active Substance: AMITRIPTYLINE
     Indication: PRODUCT USED FOR UNKNOWN INDICATION
     Dosage: 12.5 MILLIGRAM, EVERY HS
  42. TEDUGLUTIDE [Suspect]
     Active Substance: TEDUGLUTIDE
     Dosage: 4.65 MILLIGRAM, 1X/DAY:QD
     Route: 065
     Dates: start: 20200310
  43. TEDUGLUTIDE [Suspect]
     Active Substance: TEDUGLUTIDE
     Dosage: 4.85 MILLIGRAM, 1X/DAY:QD
     Route: 065
     Dates: start: 20200310
  44. IV FLUIDS [Concomitant]
     Active Substance: UNSPECIFIED INGREDIENT
     Dosage: 1000 UNK
  45. VITAMIN B [Concomitant]
     Active Substance: VITAMIN B
     Indication: PRODUCT USED FOR UNKNOWN INDICATION
     Dosage: UNK, MONTHLY
     Route: 030
  46. ATORVASTATIN [Concomitant]
     Active Substance: ATORVASTATIN
     Dosage: 40 UNK
  47. ISOTONIC FLUID [Concomitant]
     Indication: PRODUCT USED FOR UNKNOWN INDICATION
     Dosage: UNK
  48. SALINE IV [Concomitant]
     Indication: PRODUCT USED FOR UNKNOWN INDICATION
     Dosage: 1000 MILLILITER
  49. TPN [Concomitant]
     Active Substance: AMINO ACIDS\DEXTROSE\ELECTROLYTES NOS\SOYBEAN OIL
     Indication: PRODUCT USED FOR UNKNOWN INDICATION
     Dosage: UNK
     Dates: start: 20150701, end: 20201001

REACTIONS (24)
  - Glycosylated haemoglobin increased [Unknown]
  - Pain in extremity [Unknown]
  - Vaginal discharge [Recovering/Resolving]
  - Peripheral swelling [Recovered/Resolved]
  - Anxiety [Unknown]
  - Gastrointestinal polyp [Unknown]
  - Throat tightness [Unknown]
  - Fatigue [Unknown]
  - Vulvovaginal pain [Unknown]
  - Condition aggravated [Unknown]
  - Urinary tract infection [Unknown]
  - Stoma complication [Unknown]
  - Vulvovaginal discomfort [Unknown]
  - Abdominal pain upper [Unknown]
  - Blood pressure increased [Unknown]
  - Eating disorder [Unknown]
  - Nausea [Unknown]
  - Haematochezia [Recovering/Resolving]
  - Muscle spasms [Unknown]
  - Unevaluable event [Unknown]
  - Small intestinal obstruction [Unknown]
  - Anal abscess [Recovering/Resolving]
  - Vitamin D decreased [Unknown]
  - Crying [Unknown]

NARRATIVE: CASE EVENT DATE: 20200513
